FAERS Safety Report 9297444 (Version 2)
Quarter: 2013Q3

REPORT INFORMATION
  Report Type: Spontaneous
  Country: US (occurrence: US)
  Receive Date: 20130520
  Receipt Date: 20130823
  Transmission Date: 20140515
  Serious: No
  Sender: FDA-Public Use
  Company Number: US-009507513-1305USA008297

PATIENT
  Age: 22 Year
  Sex: Female
  Weight: 76.64 kg

DRUGS (2)
  1. IMPLANON [Suspect]
     Indication: CONTRACEPTION
     Dosage: UNK
     Route: 059
     Dates: start: 201203
  2. VITAMINS (UNSPECIFIED) [Concomitant]

REACTIONS (12)
  - Irritability [Not Recovered/Not Resolved]
  - Weight increased [Not Recovered/Not Resolved]
  - Medical device complication [Not Recovered/Not Resolved]
  - Dysmenorrhoea [Unknown]
  - Headache [Unknown]
  - Pain [Unknown]
  - Implant site hypoaesthesia [Unknown]
  - Implant site pain [Unknown]
  - Device difficult to use [Unknown]
  - Device deployment issue [Unknown]
  - Device dislocation [Unknown]
  - Device difficult to use [Unknown]
